FAERS Safety Report 6905745-7 (Version None)
Quarter: 2010Q3

REPORT INFORMATION
  Report Type: 
  Country: None (occurrence: None)
  Receive Date: 20100730
  Receipt Date: 20100714
  Transmission Date: 20110219
  Serious: Yes (Other)
  Sender: FDA-Public Use
  Company Number: 2010002858

PATIENT
  Sex: Male
  Weight: 93.3 kg

DRUGS (3)
  1. ERLOTINIB HYDROCHLORIDE [Suspect]
     Indication: EWING'S SARCOMA
     Dosage: (75 MG, QD), ORAL
     Route: 048
     Dates: start: 20100629, end: 20100713
  2. GDC-0449 [Suspect]
     Indication: EWING'S SARCOMA
     Dosage: (150 MG, QD), ORAL
     Route: 048
     Dates: start: 20100629, end: 20100713
  3. GEMCITABINE [Suspect]
     Indication: EWING'S SARCOMA
     Dosage: (750 MG/M2, DAYS 1, 8, AND 15), INTRAVENOUS
     Route: 042
     Dates: start: 20100629, end: 20100706

REACTIONS (5)
  - EPISTAXIS [None]
  - PLATELET COUNT DECREASED [None]
  - RASH ERYTHEMATOUS [None]
  - RASH PRURITIC [None]
  - WHITE BLOOD CELL COUNT DECREASED [None]
